FAERS Safety Report 22382788 (Version 1)
Quarter: 2023Q2

REPORT INFORMATION
  Report Type: Spontaneous
  Country: US (occurrence: None)
  Receive Date: 20230526
  Receipt Date: 20230526
  Transmission Date: 20230721
  Serious: Yes (Death)
  Sender: FDA-Public Use
  Company Number: None

PATIENT
  Sex: Male

DRUGS (10)
  1. DROXIDOPA [Suspect]
     Active Substance: DROXIDOPA
     Indication: Hypotension
     Dosage: 200 MG ORAL??TAKE 2 CAPSULES BY MOUTH THREE TIMES DAILY FOR LOW BLOOD PRESSURE
     Route: 048
     Dates: start: 20210407
  2. ACETAMINOPHEN [Concomitant]
     Active Substance: ACETAMINOPHEN
  3. ASPIRIN [Concomitant]
     Active Substance: ASPIRIN
  4. DOC-Q-LAX [Concomitant]
  5. FLUDROCORTISONE [Concomitant]
     Active Substance: FLUDROCORTISONE
  6. KEPPRA [Concomitant]
     Active Substance: LEVETIRACETAM
  7. MELATONIN [Concomitant]
     Active Substance: MELATONIN
  8. METFORMIN [Concomitant]
     Active Substance: METFORMIN HYDROCHLORIDE
  9. THERMOTABS [Concomitant]
  10. TOPROL XL [Concomitant]
     Active Substance: METOPROLOL SUCCINATE

REACTIONS (1)
  - Death [None]
